FAERS Safety Report 14741987 (Version 2)
Quarter: 2018Q2

REPORT INFORMATION
  Report Type: Report from Study
  Country: FI (occurrence: FI)
  Receive Date: 20180410
  Receipt Date: 20180413
  Transmission Date: 20180711
  Serious: Yes (Other)
  Sender: FDA-Public Use
  Company Number: FI-MYLANLABS-2018M1016869

PATIENT
  Age: 68 Year
  Sex: Male

DRUGS (26)
  1. LEPONEX [Suspect]
     Active Substance: CLOZAPINE
     Dosage: 50 MG, AM
     Dates: start: 20180307
  2. LINATILSAN [Concomitant]
     Active Substance: ENALAPRIL MALEATE
     Indication: HYPERTENSION
     Dosage: 1 DF, AM
  3. LORAZEPAM. [Concomitant]
     Active Substance: LORAZEPAM
     Dosage: 0.5 MG, QD
     Dates: start: 20180104
  4. LORAZEPAM. [Concomitant]
     Active Substance: LORAZEPAM
     Dosage: 1 MG, QD
     Dates: start: 20180107
  5. LORAZEPAM. [Concomitant]
     Active Substance: LORAZEPAM
     Dosage: 1 MG, QD
     Dates: start: 20180201
  6. LEPONEX [Suspect]
     Active Substance: CLOZAPINE
     Dosage: 100 MG, PM
     Dates: start: 20180227, end: 2018
  7. MELATONIN [Concomitant]
     Active Substance: MELATONIN
     Indication: INSOMNIA
     Dosage: 1 DF, PM
  8. PEGORION [Concomitant]
     Active Substance: POLYETHYLENE GLYCOL 4000
     Indication: CONSTIPATION
     Dosage: 1 DF, AM
  9. LEPONEX [Suspect]
     Active Substance: CLOZAPINE
     Dosage: 25 MG, PM
     Dates: start: 201802, end: 201802
  10. BISOPROLOL [Concomitant]
     Active Substance: BISOPROLOL
     Indication: HYPERTENSION
     Dosage: 1 DF, AM
  11. LORAZEPAM. [Concomitant]
     Active Substance: LORAZEPAM
     Indication: SEDATION
     Dosage: 0.5 MG, QD
     Dates: start: 20180104
  12. LEPONEX [Suspect]
     Active Substance: CLOZAPINE
     Indication: HALLUCINATION
     Dosage: 12.5 MG, PM
     Dates: start: 20180201, end: 201802
  13. LEPONEX [Suspect]
     Active Substance: CLOZAPINE
     Dosage: 75 MG, QD
     Dates: start: 20180221, end: 201802
  14. LEPONEX [Suspect]
     Active Substance: CLOZAPINE
     Dosage: 75 MG, PM
     Dates: start: 20180307
  15. LORAZEPAM. [Concomitant]
     Active Substance: LORAZEPAM
     Dosage: 1 MG, QD
     Dates: start: 20180104
  16. LEPONEX [Suspect]
     Active Substance: CLOZAPINE
     Dosage: 12.5 MG, AM
     Dates: start: 201802, end: 201802
  17. LORAZEPAM. [Concomitant]
     Active Substance: LORAZEPAM
     Dosage: 1 MG, QD
     Dates: start: 20180107
  18. LORAZEPAM. [Concomitant]
     Active Substance: LORAZEPAM
     Dosage: 0.5 MG, QD
     Dates: start: 20180201
  19. LEPONEX [Suspect]
     Active Substance: CLOZAPINE
     Dosage: 100 MG, QD
     Dates: start: 20180226, end: 201802
  20. LEPONEX [Suspect]
     Active Substance: CLOZAPINE
     Dosage: 25 MG, AM
     Dates: start: 20180227, end: 2018
  21. ZANIDIP [Concomitant]
     Active Substance: LERCANIDIPINE HYDROCHLORIDE
     Indication: HYPERTENSION
     Dosage: 1 DF, AM
  22. ZANIDIP [Concomitant]
     Active Substance: LERCANIDIPINE HYDROCHLORIDE
     Dosage: 1 DF, PM
  23. LORAZEPAM. [Concomitant]
     Active Substance: LORAZEPAM
     Dosage: 1 MG, QD
     Dates: start: 20180107
  24. LORAZEPAM. [Concomitant]
     Active Substance: LORAZEPAM
     Dosage: 0.5 MG, QD
     Dates: start: 20180201
  25. LEPONEX [Suspect]
     Active Substance: CLOZAPINE
     Dosage: 62.5 MG, QD
     Dates: start: 20180219, end: 201802
  26. TENOX                              /00393701/ [Concomitant]
     Indication: PRODUCT USED FOR UNKNOWN INDICATION
     Dosage: 1 DF, PM

REACTIONS (9)
  - Parkinsonism [Unknown]
  - Pyrexia [Unknown]
  - Respiratory tract infection [Unknown]
  - C-reactive protein increased [Recovered/Resolved]
  - Product use in unapproved indication [Unknown]
  - General physical health deterioration [Recovered/Resolved]
  - Asthenia [Recovered/Resolved]
  - Vascular dementia [Unknown]
  - White blood cell count increased [Recovered/Resolved]

NARRATIVE: CASE EVENT DATE: 2018
